FAERS Safety Report 11988230 (Version 2)
Quarter: 2016Q1

REPORT INFORMATION
  Report Type: Spontaneous
  Country: US (occurrence: US)
  Receive Date: 20160202
  Receipt Date: 20160225
  Transmission Date: 20160526
  Serious: No
  Sender: FDA-Public Use
  Company Number: US-PFIZER INC-2016053813

PATIENT
  Age: 58 Year
  Sex: Male
  Weight: 99.79 kg

DRUGS (5)
  1. LISINOPRIL. [Concomitant]
     Active Substance: LISINOPRIL
     Dosage: 20 MG, 1X/DAY
     Route: 048
     Dates: start: 20160124
  2. CHANTIX [Suspect]
     Active Substance: VARENICLINE TARTRATE
     Indication: SMOKING CESSATION THERAPY
     Dosage: 1 DF, DAILY (FIRST 7 DAYS)
     Route: 048
     Dates: start: 201511, end: 2015
  3. HYDROCHLOROTHIAZIDE. [Concomitant]
     Active Substance: HYDROCHLOROTHIAZIDE
     Dosage: UNK
     Route: 048
     Dates: start: 20160124
  4. CHANTIX [Suspect]
     Active Substance: VARENICLINE TARTRATE
     Dosage: 2 DF, DAILY (NEXT 7 DAYS)
     Route: 048
     Dates: start: 2015, end: 2015
  5. CHANTIX [Suspect]
     Active Substance: VARENICLINE TARTRATE
     Dosage: 1 DF, DAILY (LAST 7 DAYS)
     Route: 048
     Dates: start: 2015, end: 2015

REACTIONS (6)
  - Hypoaesthesia [Recovered/Resolved]
  - Limb discomfort [Unknown]
  - Cough [Unknown]
  - Dyspnoea [Unknown]
  - Abnormal dreams [Not Recovered/Not Resolved]
  - Dysgeusia [Unknown]

NARRATIVE: CASE EVENT DATE: 2015
